FAERS Safety Report 9313380 (Version 1)
Quarter: 2013Q2

REPORT INFORMATION
  Report Type: Spontaneous
  Country: US (occurrence: US)
  Receive Date: 20130528
  Receipt Date: 20130528
  Transmission Date: 20140414
  Serious: No
  Sender: FDA-Public Use
  Company Number: US-ABBOTT-13P-163-1066366-00

PATIENT
  Age: 44 Year
  Sex: Male
  Weight: 77.18 kg

DRUGS (5)
  1. ANDROGEL [Suspect]
     Indication: BLOOD TESTOSTERONE DECREASED
     Route: 061
     Dates: start: 201209
  2. ANDROGEL [Suspect]
     Indication: ASTHENIA
  3. LORTAB [Concomitant]
     Indication: MUSCULOSKELETAL CHEST PAIN
     Dates: start: 2011
  4. LORTAB [Concomitant]
     Indication: SYNOVIAL CYST
  5. XANAX [Concomitant]
     Indication: ANXIETY

REACTIONS (3)
  - Drug screen positive [Not Recovered/Not Resolved]
  - Drug screen positive [Not Recovered/Not Resolved]
  - Drug screen positive [Not Recovered/Not Resolved]
